FAERS Safety Report 23869046 (Version 1)
Quarter: 2024Q2

REPORT INFORMATION
  Report Type: Spontaneous
  Country: US (occurrence: US)
  Receive Date: 20240517
  Receipt Date: 20240517
  Transmission Date: 20240716
  Serious: No
  Sender: FDA-Public Use
  Company Number: US-Stemline Therapeutics, Inc.-2023ST005395

PATIENT
  Age: 61 Year
  Sex: Female

DRUGS (1)
  1. ORSERDU [Suspect]
     Active Substance: ELACESTRANT
     Indication: Product used for unknown indication
     Route: 048
     Dates: start: 20231004

REACTIONS (10)
  - Exostosis [Unknown]
  - Nasopharyngitis [Unknown]
  - Pain [Unknown]
  - Positron emission tomogram abnormal [Unknown]
  - COVID-19 [Unknown]
  - Arthralgia [Not Recovered/Not Resolved]
  - Pruritus [Unknown]
  - Back pain [Not Recovered/Not Resolved]
  - Pain in extremity [Not Recovered/Not Resolved]
  - Hot flush [Unknown]
